FAERS Safety Report 10420205 (Version 1)
Quarter: 2014Q3

REPORT INFORMATION
  Report Type: Spontaneous
  Country: US (occurrence: None)
  Receive Date: 20140701
  Receipt Date: 20140701
  Transmission Date: 20150326
  Serious: No
  Sender: FDA-Public Use
  Company Number: 1000067349

PATIENT
  Age: 86 Year
  Sex: Male

DRUGS (3)
  1. MILK OF MAGNESIUM (MAGNESIUM HYDROXIDE) [Concomitant]
  2. LINZESS [Suspect]
     Active Substance: LINACLOTIDE
     Indication: CONSTIPATION
     Route: 048
     Dates: start: 2014
  3. MIRALAX (OLYETHYLENE GLYCOL) [Concomitant]

REACTIONS (1)
  - Drug ineffective [None]

NARRATIVE: CASE EVENT DATE: 201405
